FAERS Safety Report 4269511-6 (Version None)
Quarter: 2004Q1

REPORT INFORMATION
  Report Type: 
  Country: None (occurrence: None)
  Receive Date: 20040112
  Receipt Date: 20031230
  Transmission Date: 20041129
  Serious: Yes (Life-Threatening)
  Sender: FDA-Public Use
  Company Number: 200314969FR

PATIENT
  Age: 68 Year
  Sex: Female

DRUGS (9)
  1. FUROSEMIDE [Suspect]
     Dosage: 20 MG/DAY PO
     Route: 048
     Dates: start: 20030308, end: 20031119
  2. SOTALOL HYDROCHLORIDE (SOTALEX) TABLETS [Suspect]
     Indication: ATRIAL FIBRILLATION
     Dosage: 40 MG BID PO
     Route: 048
     Dates: start: 20030308, end: 20031110
  3. SOTALOL HYDROCHLORIDE (SOTALEX) TABLETS [Suspect]
     Indication: ATRIAL FLUTTER
     Dosage: 40 MG BID PO
     Route: 048
     Dates: start: 20030308, end: 20031110
  4. ACETYLSALICYLIC ACID SRT [Concomitant]
  5. CLAVULANATE POTASSIUM, AMOXICILLIN TRIHYDRATE (AUGMENTIN) [Concomitant]
  6. FLUISEDAL SANS PROMETHAZINE [Concomitant]
  7. PARACETAMOL (EFFERALGAN) [Concomitant]
  8. TAMOFEN [Concomitant]
  9. SACCHAROMYCES BOULARDII (ULTRA -LEVURE0 [Concomitant]

REACTIONS (12)
  - BLOOD POTASSIUM DECREASED [None]
  - DRUG INTERACTION [None]
  - ELECTROCARDIOGRAM QT PROLONGED [None]
  - ELECTROCARDIOGRAM REPOLARISATION ABNORMALITY [None]
  - ELECTROCARDIOGRAM T WAVE INVERSION [None]
  - FALL [None]
  - LOSS OF CONSCIOUSNESS [None]
  - STATUS EPILEPTICUS [None]
  - SYNCOPE [None]
  - TORSADE DE POINTES [None]
  - VENTRICULAR ARRHYTHMIA [None]
  - VENTRICULAR TACHYCARDIA [None]
